FAERS Safety Report 14746672 (Version 2)
Quarter: 2018Q3

REPORT INFORMATION
  Report Type: Spontaneous
  Country: GB (occurrence: GB)
  Receive Date: 20180411
  Receipt Date: 20180730
  Transmission Date: 20181010
  Serious: Yes (Hospitalization)
  Sender: FDA-Public Use
  Company Number: GB-PFIZER INC-2018140962

PATIENT
  Age: 13 Year
  Sex: Male
  Weight: 68.4 kg

DRUGS (5)
  1. PREDNISOLONE ACETATE. [Concomitant]
     Active Substance: PREDNISOLONE ACETATE
     Dosage: UNK
  2. ZOLEDRONIC ACID [Suspect]
     Active Substance: ZOLEDRONIC ACID
     Indication: LUMBAR VERTEBRAL FRACTURE
     Dosage: 1.65 MG, UNK
     Route: 042
     Dates: start: 20180207, end: 20180207
  3. DALIVIT [Concomitant]
     Dosage: UNK
  4. COLECALCIFEROL [Concomitant]
     Active Substance: CHOLECALCIFEROL
     Dosage: UNK
  5. LISINOPRIL ANHYDROUS [Concomitant]
     Active Substance: LISINOPRIL

REACTIONS (4)
  - Pyrexia [Recovered/Resolved]
  - Inflammation [Recovered/Resolved]
  - Malaise [Unknown]
  - Tachycardia [Recovered/Resolved]

NARRATIVE: CASE EVENT DATE: 20180207
